FAERS Safety Report 14795595 (Version 1)
Quarter: 2018Q2

REPORT INFORMATION
  Report Type: Spontaneous
  Country: BE (occurrence: BE)
  Receive Date: 20180423
  Receipt Date: 20180423
  Transmission Date: 20180711
  Serious: Yes (Other)
  Sender: FDA-Public Use
  Company Number: BE-009507513-1606BEL009920

PATIENT
  Age: 25 Year
  Sex: Female

DRUGS (7)
  1. ZYPREXA [Concomitant]
     Active Substance: OLANZAPINE
  2. EFEXOR [Concomitant]
     Active Substance: VENLAFAXINE HYDROCHLORIDE
  3. TRADONAL [Concomitant]
     Active Substance: TRAMADOL HYDROCHLORIDE
  4. RIVOTRIL [Concomitant]
     Active Substance: CLONAZEPAM
  5. LYSANXIA [Concomitant]
     Active Substance: PRAZEPAM
  6. NUVARING [Suspect]
     Active Substance: ETHINYL ESTRADIOL\ETONOGESTREL
     Dosage: UNK
     Route: 067
     Dates: start: 201509
  7. TEMESTA (LORAZEPAM) [Concomitant]
     Active Substance: LORAZEPAM

REACTIONS (3)
  - Unintended pregnancy [Unknown]
  - Device breakage [Unknown]
  - Pregnancy with contraceptive device [Unknown]

NARRATIVE: CASE EVENT DATE: 201606
